FAERS Safety Report 23295518 (Version 6)
Quarter: 2024Q1

REPORT INFORMATION
  Report Type: Report from Study
  Country: US (occurrence: US)
  Receive Date: 20231214
  Receipt Date: 20240320
  Transmission Date: 20240410
  Serious: Yes (Other)
  Sender: FDA-Public Use
  Company Number: US-ABBVIE-5535823

PATIENT
  Sex: Female

DRUGS (7)
  1. RINVOQ [Suspect]
     Active Substance: UPADACITINIB
     Indication: Crohn^s disease
     Route: 048
     Dates: start: 20230817
  2. RINVOQ [Suspect]
     Active Substance: UPADACITINIB
     Indication: Crohn^s disease
     Route: 048
  3. WELLBUTRIN [Concomitant]
     Active Substance: BUPROPION HYDROCHLORIDE
     Indication: Product used for unknown indication
     Dosage: DAILY
  4. BIOTIN [Concomitant]
     Active Substance: BIOTIN
     Indication: Product used for unknown indication
  5. MUPIROCIN [Concomitant]
     Active Substance: MUPIROCIN
     Indication: Product used for unknown indication
     Dosage: LAST ADMIN IN 2023
     Dates: start: 20231024, end: 2023
  6. VITAMIN D [Concomitant]
     Active Substance: VITAMIN D NOS
     Indication: Product used for unknown indication
  7. BUDESONIDE [Concomitant]
     Active Substance: BUDESONIDE
     Indication: Product used for unknown indication

REACTIONS (20)
  - Dermal cyst [Recovered/Resolved]
  - Meniscus injury [Unknown]
  - Pain in extremity [Not Recovered/Not Resolved]
  - Blood potassium decreased [Unknown]
  - Memory impairment [Unknown]
  - Polyarthritis [Not Recovered/Not Resolved]
  - Malabsorption [Unknown]
  - Vitamin B12 decreased [Unknown]
  - Swelling face [Unknown]
  - Fatigue [Recovering/Resolving]
  - Arthritis [Unknown]
  - Pharyngeal swelling [Unknown]
  - Erythema [Unknown]
  - Abscess [Unknown]
  - Cellulitis [Unknown]
  - Lactose intolerance [Unknown]
  - Dehydration [Recovering/Resolving]
  - Arthropathy [Unknown]
  - Diarrhoea [Unknown]
  - Musculoskeletal stiffness [Unknown]

NARRATIVE: CASE EVENT DATE: 20230101
